FAERS Safety Report 13655143 (Version 1)
Quarter: 2017Q2

REPORT INFORMATION
  Report Type: Report from Study
  Country: US (occurrence: US)
  Receive Date: 20170615
  Receipt Date: 20170615
  Transmission Date: 20170830
  Serious: Yes (Death)
  Sender: FDA-Public Use
  Company Number: US-TORRENT-00003020

PATIENT
  Age: 55 Year
  Sex: Female

DRUGS (6)
  1. CITALOPRAM [Suspect]
     Active Substance: CITALOPRAM HYDROBROMIDE
  2. DONEPEZIL. [Suspect]
     Active Substance: DONEPEZIL
  3. MIRTAZAPINE. [Suspect]
     Active Substance: MIRTAZAPINE
  4. QUETIAPINE. [Suspect]
     Active Substance: QUETIAPINE
  5. BENZATROPINE [Suspect]
     Active Substance: BENZTROPINE
  6. AMLODIPINE [Suspect]
     Active Substance: AMLODIPINE BESYLATE

REACTIONS (1)
  - Toxicity to various agents [Fatal]
